FAERS Safety Report 4403459-9 (Version None)
Quarter: 2004Q3

REPORT INFORMATION
  Report Type: 
  Country: None (occurrence: None)
  Receive Date: 20040716
  Receipt Date: 20020322
  Transmission Date: 20050211
  Serious: Yes (Hospitalization)
  Sender: FDA-Public Use
  Company Number: 02100-USA-02-0144

PATIENT
  Age: 63 Year
  Sex: Female

DRUGS (7)
  1. PLETAL [Suspect]
     Indication: INTERMITTENT CLAUDICATION
     Dosage: 50 MG BID ORAL
     Route: 048
     Dates: start: 20020101
  2. SPIRONOLACTONE [Concomitant]
  3. ISOSORBIDE [Concomitant]
  4. DIAZEPAM [Concomitant]
  5. CAPTOPRIL [Concomitant]
  6. LASIX [Concomitant]
  7. MICRONASE [Concomitant]

REACTIONS (2)
  - HYPERGLYCAEMIA [None]
  - HYPERSENSITIVITY [None]
